FAERS Safety Report 14988346 (Version 1)
Quarter: 2018Q2

REPORT INFORMATION
  Report Type: Spontaneous
  Country: US (occurrence: US)
  Receive Date: 20180608
  Receipt Date: 20180608
  Transmission Date: 20180711
  Serious: Yes (Other)
  Sender: FDA-Public Use
  Company Number: US-SA-2017SA266937

PATIENT
  Age: 50 Year
  Sex: Female
  Weight: 71.66 kg

DRUGS (5)
  1. ADRIAMYCIN [DOXORUBICIN HYDROCHLORIDE] [Concomitant]
  2. METOPROLOL. [Concomitant]
     Active Substance: METOPROLOL
  3. TAXOTERE [Suspect]
     Active Substance: DOCETAXEL
     Dosage: 125 MG,Q3W
     Route: 042
     Dates: start: 20051222, end: 20051222
  4. CYTOXAN [Concomitant]
     Active Substance: CYCLOPHOSPHAMIDE
     Dosage: UNK
  5. TAXOTERE [Suspect]
     Active Substance: DOCETAXEL
     Indication: BREAST CANCER FEMALE
     Dosage: 125 MG,Q3W
     Route: 042
     Dates: start: 20050909, end: 20050909

REACTIONS (2)
  - Alopecia [Recovering/Resolving]
  - Psychological trauma [Unknown]

NARRATIVE: CASE EVENT DATE: 20170724
